FAERS Safety Report 8834652 (Version 1)
Quarter: 2012Q4

REPORT INFORMATION
  Report Type: Spontaneous
  Country: US (occurrence: None)
  Receive Date: 20120913
  Receipt Date: 20120913
  Transmission Date: 20130627
  Serious: Yes (Hospitalization)
  Sender: FDA-Public Use
  Company Number: 2012PROUSA01929

PATIENT
  Age: 73 Year
  Sex: Male
  Weight: 97.5 kg

DRUGS (8)
  1. PROVENGE [Suspect]
     Indication: PROSTATE CANCER METASTATIC
     Dosage: 250 ml, single, intravenous
     Route: 042
     Dates: start: 20120628, end: 20120628
  2. TESTOSTERONE [Suspect]
     Dosage: 250 ml, single, intravenous
     Route: 042
     Dates: start: 20120712, end: 20120712
  3. PROVENGE [Suspect]
     Dosage: 250 ml, single, intravenous #3
     Route: 042
     Dates: start: 20120726, end: 20120726
  4. EULEXIN (FLUTAMIDE) [Concomitant]
  5. TERAZOSIN (TERAZOSIN HYDROCHLORIDE) [Concomitant]
  6. LISINOPRIL (LISINOPRIL) [Concomitant]
  7. SIMVASTATIN (SIMVASTATIN) [Concomitant]
  8. NAPROXEN SODIUM (NAPROXEN SODIUM) [Concomitant]

REACTIONS (1)
  - Myocardial infarction [None]
